FAERS Safety Report 6356046-X (Version None)
Quarter: 2009Q3

REPORT INFORMATION
  Report Type: 
  Country: None (occurrence: None)
  Receive Date: 20090914
  Receipt Date: 20090914
  Transmission Date: 20100115
  Serious: Yes (Hospitalization)
  Sender: FDA-Public Use
  Company Number: None

PATIENT
  Sex: Male
  Weight: 114.5 kg

DRUGS (19)
  1. BELATACEPT 250 MG/ML BRISTOL MYERS SQUIBB [Suspect]
     Indication: IMMUNOSUPPRESSANT DRUG THERAPY
     Dosage: 10 MG/KG (1070 MG) DAY 0, 4, 8, 14 IV
     Route: 042
     Dates: start: 20090813
  2. BELATACEPT 250 MG/ML BRISTOL MYERS SQUIBB [Suspect]
     Indication: RENAL TRANSPLANT
     Dosage: 10 MG/KG (1070 MG) DAY 0, 4, 8, 14 IV
     Route: 042
     Dates: start: 20090813
  3. BELATACEPT 250 MG/ML BRISTOL MYERS SQUIBB [Suspect]
     Indication: IMMUNOSUPPRESSANT DRUG THERAPY
     Dosage: 10 MG/KG (1070 MG) DAY 0, 4, 8, 14 IV
     Route: 042
     Dates: start: 20090828
  4. BELATACEPT 250 MG/ML BRISTOL MYERS SQUIBB [Suspect]
     Indication: RENAL TRANSPLANT
     Dosage: 10 MG/KG (1070 MG) DAY 0, 4, 8, 14 IV
     Route: 042
     Dates: start: 20090828
  5. BELATACEPT 250 MG/ML BRISTOL MYERS SQUIBB [Suspect]
     Indication: IMMUNOSUPPRESSANT DRUG THERAPY
     Dosage: 10 MG/KG (1070 MG) DAY 0, 4, 8, 14 IV
     Route: 042
     Dates: start: 20090903
  6. BELATACEPT 250 MG/ML BRISTOL MYERS SQUIBB [Suspect]
     Indication: RENAL TRANSPLANT
     Dosage: 10 MG/KG (1070 MG) DAY 0, 4, 8, 14 IV
     Route: 042
     Dates: start: 20090903
  7. BELATACEPT 250 MG/ML BRISTOL MYERS SQUIBB [Suspect]
     Indication: IMMUNOSUPPRESSANT DRUG THERAPY
     Dosage: 10 MG/KG (1070 MG) DAY 0, 4, 8, 14 IV
     Route: 042
     Dates: start: 20090910
  8. BELATACEPT 250 MG/ML BRISTOL MYERS SQUIBB [Suspect]
     Indication: RENAL TRANSPLANT
     Dosage: 10 MG/KG (1070 MG) DAY 0, 4, 8, 14 IV
     Route: 042
     Dates: start: 20090910
  9. CAMPATH [Concomitant]
  10. SIROLIMUS [Concomitant]
  11. KPHOS NEUTRAL [Concomitant]
  12. REQUIP [Concomitant]
  13. BACTRIM [Concomitant]
  14. VALTREX [Concomitant]
  15. PROTONIX [Concomitant]
  16. M.V.I. [Concomitant]
  17. CLARITIN [Concomitant]
  18. COLACE [Concomitant]
  19. PERCOCET [Concomitant]

REACTIONS (6)
  - BODY TEMPERATURE INCREASED [None]
  - COUGH [None]
  - HEADACHE [None]
  - KIDNEY TRANSPLANT REJECTION [None]
  - POSTNASAL DRIP [None]
  - THROAT IRRITATION [None]
